FAERS Safety Report 4662070-5 (Version None)
Quarter: 2005Q2

REPORT INFORMATION
  Report Type: 
  Country: None (occurrence: None)
  Receive Date: 20050516
  Receipt Date: 20050506
  Transmission Date: 20051028
  Serious: Yes (Other)
  Sender: FDA-Public Use
  Company Number: US-JNJFOC-20050302147

PATIENT
  Age: 41 Year
  Sex: Male
  Weight: 93.9 kg

DRUGS (6)
  1. REMICADE [Suspect]
     Route: 042
  2. AVAPRO [Concomitant]
  3. NORVASC [Concomitant]
  4. METHOTREXATE [Concomitant]
  5. ASPIRIN [Concomitant]
  6. FOLIC ACID [Concomitant]

REACTIONS (1)
  - LIPODYSTROPHY ACQUIRED [None]
